FAERS Safety Report 16548516 (Version 1)
Quarter: 2019Q3

REPORT INFORMATION
  Report Type: Spontaneous
  Country: CH (occurrence: CH)
  Receive Date: 20190709
  Receipt Date: 20190709
  Transmission Date: 20191004
  Serious: Yes (Life-Threatening, Hospitalization, Other)
  Sender: FDA-Public Use
  Company Number: CH-MYLANLABS-2019M1063353

PATIENT
  Age: 12 Year
  Sex: Male

DRUGS (3)
  1. HYDROCORTISONE. [Concomitant]
     Active Substance: HYDROCORTISONE
     Indication: ANAPHYLACTIC REACTION
     Route: 042
  2. CLEMASTINE [Concomitant]
     Active Substance: CLEMASTINE
     Indication: ANAPHYLACTIC REACTION
     Route: 042
  3. EPINEPHRINE. [Suspect]
     Active Substance: EPINEPHRINE
     Indication: ANAPHYLACTIC REACTION
     Route: 042

REACTIONS (11)
  - Accidental overdose [Recovered/Resolved]
  - Blood pressure decreased [Recovered/Resolved]
  - Cardiopulmonary failure [Recovered/Resolved]
  - Sinus tachycardia [Recovered/Resolved]
  - Incorrect route of product administration [Recovered/Resolved]
  - Loss of consciousness [Recovered/Resolved]
  - Myocardial ischaemia [Recovered/Resolved]
  - Acute pulmonary oedema [Recovered/Resolved]
  - Cardiac failure acute [Recovered/Resolved]
  - Toxicity to various agents [Recovered/Resolved]
  - Circulatory collapse [Recovered/Resolved]
